FAERS Safety Report 5971216-8 (Version None)
Quarter: 2008Q4

REPORT INFORMATION
  Report Type: 
  Country: None (occurrence: None)
  Receive Date: 20081128
  Receipt Date: 20081119
  Transmission Date: 20090506
  Serious: Yes (Hospitalization)
  Sender: FDA-Public Use
  Company Number: JP-AMGEN-US313758

PATIENT
  Sex: Male

DRUGS (3)
  1. ENBREL [Suspect]
     Indication: RHEUMATOID ARTHRITIS
     Dosage: UNSPEICIFIED DOSE ONCE WEEKLY
     Dates: start: 20060701, end: 20080601
  2. RHEUMATREX [Suspect]
     Indication: RHEUMATOID ARTHRITIS
     Route: 048
     Dates: start: 20060314, end: 20081005
  3. BREDININ [Concomitant]
     Indication: RHEUMATOID ARTHRITIS
     Route: 048
     Dates: start: 20060819, end: 20081007

REACTIONS (4)
  - BONE MARROW FAILURE [None]
  - KNEE ARTHROPLASTY [None]
  - NAUSEA [None]
  - PNEUMONIA [None]
